FAERS Safety Report 7884186-2 (Version None)
Quarter: 2011Q4

REPORT INFORMATION
  Report Type: 
  Country: None (occurrence: None)
  Receive Date: 20111102
  Receipt Date: 20111031
  Transmission Date: 20120403
  Serious: Yes (Other)
  Sender: FDA-Public Use
  Company Number: RU-GLAXOSMITHKLINE-B0759633A

PATIENT
  Sex: Female

DRUGS (2)
  1. FLUTICASONE PROPIONATE [Suspect]
     Indication: PRODUCT USED FOR UNKNOWN INDICATION
     Dosage: 100MCG PER DAY
     Route: 045
     Dates: start: 20111001
  2. LEVOTHYROXINE SODIUM [Concomitant]
     Indication: THERAPEUTIC PROCEDURE
     Route: 048

REACTIONS (1)
  - AGGRESSION [None]
